FAERS Safety Report 4301569-8 (Version None)
Quarter: 2004Q1

REPORT INFORMATION
  Report Type: 
  Country: None (occurrence: None)
  Receive Date: 20040219
  Receipt Date: 20040210
  Transmission Date: 20041129
  Serious: Yes (Death)
  Sender: FDA-Public Use
  Company Number: US-JNJFOC20040202435

PATIENT
  Age: 67 Year
  Sex: Male

DRUGS (2)
  1. LEVAQUIN [Suspect]
     Indication: INFECTION
     Dosage: ORAL
     Route: 048
     Dates: end: 20040201
  2. AMIODARONE HCL [Concomitant]

REACTIONS (2)
  - ELECTROCARDIOGRAM QT PROLONGED [None]
  - ROAD TRAFFIC ACCIDENT [None]
